FAERS Safety Report 8634843 (Version 2)
Quarter: 2015Q1

REPORT INFORMATION
  Report Type: Spontaneous
  Country: US (occurrence: US)
  Receive Date: 20120626
  Receipt Date: 20150127
  Transmission Date: 20150721
  Serious: No
  Sender: FDA-Public Use
  Company Number: US-ASTRAZENECA-2012SE39220

PATIENT
  Age: 519 Month
  Sex: Female
  Weight: 81.6 kg

DRUGS (3)
  1. SEROQUEL XR [Suspect]
     Active Substance: QUETIAPINE FUMARATE
     Indication: BIPOLAR DISORDER
     Route: 048
     Dates: start: 2010
  2. SEROQUEL XR [Suspect]
     Active Substance: QUETIAPINE FUMARATE
     Indication: BIPOLAR DISORDER
     Route: 048
     Dates: start: 2010
  3. SEROQUEL XR [Suspect]
     Active Substance: QUETIAPINE FUMARATE
     Indication: BIPOLAR DISORDER
     Route: 048
     Dates: start: 201411

REACTIONS (11)
  - Bipolar disorder [Not Recovered/Not Resolved]
  - Crying [Unknown]
  - Anger [Unknown]
  - Irritability [Unknown]
  - Affect lability [Unknown]
  - Tachyphrenia [Unknown]
  - Intentional product misuse [Unknown]
  - Menopausal symptoms [Unknown]
  - Insomnia [Unknown]
  - Nightmare [Unknown]
  - Drug dose omission [Unknown]

NARRATIVE: CASE EVENT DATE: 201206
